FAERS Safety Report 7715411-6 (Version None)
Quarter: 2011Q3

REPORT INFORMATION
  Report Type: 
  Country: None (occurrence: None)
  Receive Date: 20110829
  Receipt Date: 20110823
  Transmission Date: 20111222
  Serious: Yes (Other)
  Sender: FDA-Public Use
  Company Number: US-ASTRAZENECA-2009UW18034

PATIENT
  Sex: Female
  Weight: 76.2 kg

DRUGS (16)
  1. KETOCONAZOLE [Concomitant]
     Dates: start: 20020315
  2. SULFAMETHOXAZOLE [Concomitant]
     Dates: start: 20020819
  3. ALLEGRA D 24 HOUR [Concomitant]
     Dates: start: 20020315
  4. WELLBUTRIN SR [Concomitant]
     Dates: start: 20021113
  5. SEROQUEL [Suspect]
     Indication: AGORAPHOBIA
     Dosage: 100 MG TO 300 MG
     Route: 048
     Dates: start: 20020320
  6. AVELOX [Concomitant]
     Dates: start: 20020315
  7. CYMBALTA [Concomitant]
  8. LAMICTAL [Concomitant]
     Dates: start: 20020711
  9. ACIPHEX [Concomitant]
     Dates: start: 20020226
  10. DIAZEPAM [Concomitant]
     Dates: start: 20020821
  11. ZOLOFT [Concomitant]
     Dates: start: 20020320
  12. SEROQUEL [Suspect]
     Indication: INSOMNIA
     Dosage: 100 MG TO 300 MG
     Route: 048
     Dates: start: 20020320
  13. SEROQUEL [Suspect]
     Indication: PANIC DISORDER
     Dosage: 100 MG TO 300 MG
     Route: 048
     Dates: start: 20020320
  14. FLUMADINE [Concomitant]
     Dates: start: 20020315
  15. IBUPROFEN [Concomitant]
     Dates: start: 20020819
  16. RISPERDAL [Concomitant]

REACTIONS (6)
  - HYPERGLYCAEMIA [None]
  - NEUROPATHY PERIPHERAL [None]
  - TYPE 2 DIABETES MELLITUS [None]
  - PANCREATITIS [None]
  - DIABETIC KETOACIDOSIS [None]
  - DIABETIC COMA [None]
